FAERS Safety Report 8438132-3 (Version None)
Quarter: 2012Q2

REPORT INFORMATION
  Report Type: 
  Country: None (occurrence: None)
  Receive Date: 20120614
  Receipt Date: 20120606
  Transmission Date: 20120825
  Serious: Yes (Hospitalization)
  Sender: FDA-Public Use
  Company Number: US-CELGENEUS-163-50794-12060766

PATIENT
  Age: 72 Year
  Sex: Female
  Weight: 60 kg

DRUGS (3)
  1. VIDAZA [Suspect]
     Dosage: 75 MILLIGRAM/SQ. METER
     Route: 058
     Dates: start: 20120312, end: 20120318
  2. GEMTUZUMAB [Suspect]
     Dosage: 3 MILLIGRAM/SQ. METER
     Route: 041
     Dates: start: 20120312, end: 20120319
  3. HYDROXYUREA [Suspect]
     Dosage: 1500 MILLIGRAM
     Route: 048
     Dates: start: 20120312, end: 20120322

REACTIONS (4)
  - CONDUCTION DISORDER [None]
  - LEFT VENTRICULAR DYSFUNCTION [None]
  - PULMONARY OEDEMA [None]
  - DYSPNOEA [None]
